FAERS Safety Report 12800530 (Version 2)
Quarter: 2017Q1

REPORT INFORMATION
  Report Type: Report from Study
  Country: None (occurrence: CO)
  Receive Date: 20160930
  Receipt Date: 20170127
  Transmission Date: 20170428
  Serious: Yes (Hospitalization, Other)
  Sender: FDA-Public Use
  Company Number: CO-ABBVIE-16K-036-1742229-00

PATIENT
  Age: 17 Year
  Sex: Female
  Weight: 49 kg

DRUGS (1)
  1. HUMIRA [Suspect]
     Active Substance: ADALIMUMAB
     Indication: JUVENILE IDIOPATHIC ARTHRITIS
     Route: 058
     Dates: start: 20140716, end: 20160803

REACTIONS (11)
  - Migraine [Recovering/Resolving]
  - Haemolytic anaemia [Recovering/Resolving]
  - Asthenia [Unknown]
  - Nausea [Recovering/Resolving]
  - Respiratory distress [Recovering/Resolving]
  - Systemic lupus erythematosus [Unknown]
  - Vision blurred [Recovering/Resolving]
  - Headache [Unknown]
  - Vision blurred [Unknown]
  - Respiratory distress [Unknown]
  - Malaise [Recovering/Resolving]

NARRATIVE: CASE EVENT DATE: 20160829
